FAERS Safety Report 7029749-1 (Version None)
Quarter: 2010Q4

REPORT INFORMATION
  Report Type: 
  Country: None (occurrence: None)
  Receive Date: 20101005
  Receipt Date: 20101005
  Transmission Date: 20110411
  Serious: Yes (Other)
  Sender: FDA-Public Use
  Company Number: None

PATIENT
  Sex: Male

DRUGS (1)
  1. PHENYTON SODIUM 1GR CAP [Suspect]
     Dosage: 7 CAPSULES EVERY OTHER DAY PO
     Route: 048
     Dates: start: 19930201, end: 20080201

REACTIONS (7)
  - AMNESIA [None]
  - BALANCE DISORDER [None]
  - BLADDER DISORDER [None]
  - CONFUSIONAL STATE [None]
  - COORDINATION ABNORMAL [None]
  - DIZZINESS [None]
  - HEADACHE [None]
